FAERS Safety Report 8876320 (Version 1)
Quarter: 2012Q4

REPORT INFORMATION
  Report Type: 
  Country: ES (occurrence: ES)
  Receive Date: 20121031
  Receipt Date: 20121031
  Transmission Date: 20130627
  Serious: Yes (Hospitalization)
  Sender: FDA-Public Use
  Company Number: ES-JNJFOC-20121014579

PATIENT
  Age: 81 Year
  Sex: Female

DRUGS (1)
  1. PAZITAL [Suspect]
     Indication: ARTHRALGIA
     Route: 048
     Dates: start: 20120720, end: 20120806

REACTIONS (1)
  - Cardiac failure [Recovering/Resolving]
